FAERS Safety Report 5620519-5 (Version None)
Quarter: 2008Q1

REPORT INFORMATION
  Report Type: 
  Country: None (occurrence: None)
  Receive Date: 20080208
  Receipt Date: 20080205
  Transmission Date: 20080703
  Serious: Yes (Hospitalization)
  Sender: FDA-Public Use
  Company Number: ES-BOEHRINGER INGELHEIM GMBH, GERMANY-2008-ES-00037ES

PATIENT
  Age: 86 Year
  Sex: Male

DRUGS (6)
  1. SPIRIVA [Suspect]
     Route: 065
     Dates: start: 20060101
  2. BENESTAN [Suspect]
     Route: 065
     Dates: start: 20060101
  3. IBUPROFEN [Suspect]
     Indication: SKIN ULCER
     Route: 065
     Dates: start: 20071122
  4. FUROSEMIDA [Suspect]
     Route: 065
     Dates: start: 20060101
  5. HIBOR [Suspect]
     Indication: VENOUS STASIS
     Route: 042
     Dates: start: 20071116, end: 20071126
  6. DAFLON [Suspect]
     Indication: VENOUS STASIS
     Route: 048
     Dates: start: 20071122

REACTIONS (1)
  - PURPURA [None]
